FAERS Safety Report 8063215-X (Version None)
Quarter: 2012Q1

REPORT INFORMATION
  Report Type: 
  Country: None (occurrence: None)
  Receive Date: 20120123
  Receipt Date: 20120119
  Transmission Date: 20120608
  Serious: Yes (Death, Hospitalization)
  Sender: FDA-Public Use
  Company Number: PHEH2012US001570

PATIENT
  Sex: Male
  Weight: 74.376 kg

DRUGS (3)
  1. ARANESP [Concomitant]
  2. DECITABINE [Concomitant]
  3. EXJADE [Suspect]
     Indication: IRON OVERLOAD
     Dosage: 1500 MG, DAILY
     Route: 048
     Dates: start: 20100524

REACTIONS (9)
  - PALLOR [None]
  - ANAEMIA [None]
  - ASTHENIA [None]
  - NEOPLASM PROGRESSION [None]
  - DYSPNOEA [None]
  - NEOPLASM MALIGNANT [None]
  - OEDEMA [None]
  - LEUKOPENIA [None]
  - CONFUSIONAL STATE [None]
